FAERS Safety Report 7001356-6 (Version None)
Quarter: 2010Q3

REPORT INFORMATION
  Report Type: 
  Country: None (occurrence: None)
  Receive Date: 20100920
  Receipt Date: 20100507
  Transmission Date: 20110219
  Serious: Yes (Hospitalization)
  Sender: FDA-Public Use
  Company Number: US-ASTRAZENECA-2010SE20931

PATIENT
  Age: 47 Year
  Sex: Female
  Weight: 72.6 kg

DRUGS (11)
  1. SEROQUEL [Suspect]
     Indication: BIPOLAR DISORDER
     Route: 048
  2. SEROQUEL [Suspect]
     Indication: SUICIDAL IDEATION
     Route: 048
  3. SEROQUEL [Suspect]
     Route: 048
     Dates: start: 20100301
  4. SEROQUEL [Suspect]
     Route: 048
     Dates: start: 20100301
  5. SEROQUEL [Suspect]
     Route: 048
     Dates: start: 20100301
  6. SEROQUEL [Suspect]
     Route: 048
     Dates: start: 20100301
  7. SEROQUEL [Suspect]
     Route: 048
  8. SEROQUEL [Suspect]
     Route: 048
  9. CLONOPIN [Concomitant]
  10. AMBIEN [Concomitant]
  11. CELEXA [Concomitant]

REACTIONS (2)
  - DRUG DOSE OMISSION [None]
  - SUICIDAL IDEATION [None]
